FAERS Safety Report 25807578 (Version 2)
Quarter: 2025Q3

REPORT INFORMATION
  Report Type: Spontaneous
  Country: EU (occurrence: EU)
  Receive Date: 20250916
  Receipt Date: 20250927
  Transmission Date: 20251020
  Serious: Yes (Death, Life-Threatening, Other)
  Sender: COSETTE PHARMACEUTICALS INC
  Company Number: EU-COSETTE-CP2025DE000912

PATIENT
  Age: 35 Year
  Sex: Female
  Weight: 48 kg

DRUGS (9)
  1. ZOLPIDEM TARTRATE [Suspect]
     Active Substance: ZOLPIDEM TARTRATE
     Indication: Product used for unknown indication
     Route: 065
  2. LAMOTRIGINE [Suspect]
     Active Substance: LAMOTRIGINE
     Indication: Product used for unknown indication
     Route: 048
  3. ZOPICLONE [Suspect]
     Active Substance: ZOPICLONE
     Indication: Product used for unknown indication
     Route: 065
  4. DIPHENHYDRAMINE [Suspect]
     Active Substance: DIPHENHYDRAMINE
     Indication: Product used for unknown indication
     Route: 065
  5. PREGABALIN [Suspect]
     Active Substance: PREGABALIN
     Indication: Product used for unknown indication
     Route: 065
  6. TRAMADOL HYDROCHLORIDE [Suspect]
     Active Substance: TRAMADOL HYDROCHLORIDE
     Indication: Product used for unknown indication
     Route: 065
  7. DESVENLAFAXINE [Suspect]
     Active Substance: DESVENLAFAXINE
     Indication: Product used for unknown indication
     Route: 065
  8. MODAFINIL [Suspect]
     Active Substance: MODAFINIL
     Indication: Product used for unknown indication
     Route: 065
  9. CORTISONE [Concomitant]
     Active Substance: CORTISONE
     Indication: Multiple sclerosis
     Route: 065

REACTIONS (8)
  - Toxicity to various agents [Fatal]
  - Cutaneous vasculitis [Fatal]
  - Swelling face [Fatal]
  - Skin discolouration [Fatal]
  - Skin abrasion [Fatal]
  - Haemorrhage subcutaneous [Fatal]
  - Erythema [Fatal]
  - Scratch [Fatal]
